FAERS Safety Report 20647849 (Version 5)
Quarter: 2022Q4

REPORT INFORMATION
  Report Type: Report from Study
  Country: GB (occurrence: GB)
  Receive Date: 20220329
  Receipt Date: 20221226
  Transmission Date: 20230112
  Serious: Yes (Other)
  Sender: FDA-Public Use
  Company Number: GB-NOVARTISPH-NVSC2022GB036150

PATIENT
  Sex: Female

DRUGS (3)
  1. MAYZENT [Suspect]
     Active Substance: SIPONIMOD
     Indication: Multiple sclerosis
     Dosage: UNK
     Route: 065
  2. MAYZENT [Suspect]
     Active Substance: SIPONIMOD
     Dosage: 1 MG
     Route: 065
  3. MAYZENT [Suspect]
     Active Substance: SIPONIMOD
     Dosage: 1 MG, QD
     Route: 048
     Dates: start: 20220114

REACTIONS (17)
  - Enchondromatosis [Recovered/Resolved]
  - Hot flush [Recovered/Resolved]
  - Vision blurred [Recovered/Resolved]
  - Nasopharyngitis [Recovered/Resolved]
  - Musculoskeletal stiffness [Not Recovered/Not Resolved]
  - Visual impairment [Not Recovered/Not Resolved]
  - Abdominal pain [Not Recovered/Not Resolved]
  - Muscular weakness [Not Recovered/Not Resolved]
  - Muscle spasms [Not Recovered/Not Resolved]
  - Hypertension [Not Recovered/Not Resolved]
  - Headache [Recovered/Resolved]
  - Fatigue [Recovered/Resolved]
  - Lymphocyte count decreased [Unknown]
  - Cognitive disorder [Unknown]
  - Feeling abnormal [Unknown]
  - Memory impairment [Unknown]
  - Depressed mood [Unknown]

NARRATIVE: CASE EVENT DATE: 20220712
